FAERS Safety Report 11632697 (Version 1)
Quarter: 2015Q4

REPORT INFORMATION
  Report Type: Spontaneous
  Country: US (occurrence: None)
  Receive Date: 20151014
  Receipt Date: 20151014
  Transmission Date: 20160304
  Serious: Yes (Disabling)
  Sender: FDA-Public Use
  Company Number: None

PATIENT
  Age: 13 Month
  Sex: Female
  Weight: 13.61 kg

DRUGS (3)
  1. RESTORE [Concomitant]
     Active Substance: GLYCERIN
  2. MIRALAX [Suspect]
     Active Substance: POLYETHYLENE GLYCOL 3350
     Indication: CONSTIPATION
     Dosage: 8-17 GRAMS
     Route: 048
     Dates: start: 20130213, end: 20151007
  3. MAGNESIUM CITRATE. [Concomitant]
     Active Substance: MAGNESIUM CITRATE

REACTIONS (10)
  - Obsessive-compulsive disorder [None]
  - Aggression [None]
  - Abnormal behaviour [None]
  - Drug withdrawal syndrome [None]
  - Dyspepsia [None]
  - Tic [None]
  - Decreased eye contact [None]
  - Personality change [None]
  - Depression [None]
  - Social avoidant behaviour [None]

NARRATIVE: CASE EVENT DATE: 20130213
